FAERS Safety Report 10028481 (Version 1)
Quarter: 2014Q1

REPORT INFORMATION
  Report Type: Spontaneous
  Country: DK (occurrence: CA)
  Receive Date: 20140321
  Receipt Date: 20140321
  Transmission Date: 20141002
  Serious: Yes (Other)
  Sender: FDA-Public Use
  Company Number: CA-FRI-1000064797

PATIENT
  Age: 46 Year
  Sex: Female

DRUGS (1)
  1. CELEXA [Suspect]
     Indication: GENERALISED ANXIETY DISORDER
     Dosage: 20 MG
     Route: 048

REACTIONS (3)
  - Blood pressure decreased [Recovered/Resolved]
  - Loss of consciousness [Recovered/Resolved]
  - Fall [Recovered/Resolved]
